FAERS Safety Report 4812124-5 (Version None)
Quarter: 2005Q4

REPORT INFORMATION
  Report Type: 
  Country: None (occurrence: None)
  Receive Date: 20051026
  Receipt Date: 20051014
  Transmission Date: 20060501
  Serious: Yes (Hospitalization, Other)
  Sender: FDA-Public Use
  Company Number: USA-2005-0021481

PATIENT
  Age: 48 Year
  Sex: Female

DRUGS (5)
  1. MS CONTIN [Suspect]
     Indication: PAIN
     Dosage: SEE IMAGE
     Route: 048
     Dates: start: 20020101, end: 20030101
  2. MORPHINE SULFATE [Suspect]
     Indication: PAIN
     Dosage: 10 MG
  3. KLONOPIN [Concomitant]
  4. VALIUM [Concomitant]
  5. PSYCHOTROPICS [Concomitant]

REACTIONS (9)
  - CARDIO-RESPIRATORY ARREST [None]
  - DELUSION [None]
  - DEPRESSION [None]
  - DRUG INEFFECTIVE [None]
  - DRUG INTERACTION [None]
  - HALLUCINATION, VISUAL [None]
  - PAIN [None]
  - RESPIRATORY DISORDER [None]
  - TOOTH FRACTURE [None]
